FAERS Safety Report 9314819 (Version 1)
Quarter: 2013Q2

REPORT INFORMATION
  Report Type: Spontaneous
  Country: CN (occurrence: CN)
  Receive Date: 20130529
  Receipt Date: 20130529
  Transmission Date: 20140414
  Serious: Yes (Other)
  Sender: FDA-Public Use
  Company Number: CN-ASTRAZENECA-2013SE37236

PATIENT
  Sex: Female
  Weight: 55 kg

DRUGS (2)
  1. ZOLADEX [Suspect]
     Indication: HORMONE THERAPY
     Route: 058
     Dates: start: 20111126
  2. CHEMOTHERAPY [Suspect]

REACTIONS (2)
  - Thymus enlargement [Recovered/Resolved with Sequelae]
  - Hormone level abnormal [Unknown]
